FAERS Safety Report 6588718-6 (Version None)
Quarter: 2010Q1

REPORT INFORMATION
  Report Type: 
  Country: None (occurrence: None)
  Receive Date: 20100218
  Receipt Date: 20100212
  Transmission Date: 20100710
  Serious: Yes (Congenital Anomaly, Other)
  Sender: FDA-Public Use
  Company Number: DE-SANOFI-AVENTIS-2009SA002283

PATIENT
  Age: 0 Day

DRUGS (10)
  1. VERAPAMIL HCL [Suspect]
     Indication: HYPERTENSION
     Route: 064
  2. ATENOLOL [Suspect]
     Indication: HYPERTENSION
     Route: 064
  3. METOPROLOL TARTRATE [Suspect]
     Indication: HYPERTENSION
     Route: 064
  4. FUROSEMIDE [Suspect]
     Route: 064
  5. ACETYLSALICYLIC ACID [Concomitant]
     Route: 064
  6. METHYLDOPA [Suspect]
     Indication: HYPERTENSION
     Route: 064
  7. AZATHIOPRINE [Suspect]
     Route: 064
  8. TACROLIMUS [Suspect]
     Route: 064
  9. DARBEPOETIN ALFA [Suspect]
     Route: 064
  10. DIAZEPAM [Suspect]
     Indication: DRUG USE FOR UNKNOWN INDICATION
     Route: 064

REACTIONS (7)
  - ATRIAL SEPTAL DEFECT [None]
  - DRUG EXPOSURE DURING PREGNANCY [None]
  - NEONATAL ANURIA [None]
  - PATENT DUCTUS ARTERIOSUS [None]
  - PERSISTENT FOETAL CIRCULATION [None]
  - PREMATURE BABY [None]
  - TRICUSPID VALVE INCOMPETENCE [None]
